FAERS Safety Report 10070955 (Version 2)
Quarter: 2014Q2

REPORT INFORMATION
  Report Type: Spontaneous
  Country: US (occurrence: US)
  Receive Date: 20140410
  Receipt Date: 20140612
  Transmission Date: 20141212
  Serious: Yes (Hospitalization)
  Sender: FDA-Public Use
  Company Number: US-GLAXOSMITHKLINE-A1067881A

PATIENT
  Age: 58 Year
  Sex: Female

DRUGS (19)
  1. LAMICTAL [Suspect]
     Indication: DEPRESSION
     Dosage: 100MG PER DAY
     Route: 048
     Dates: start: 2002
  2. FLONASE [Suspect]
     Indication: MULTIPLE ALLERGIES
     Dosage: 2SPR TWICE PER DAY
     Route: 045
     Dates: start: 2004
  3. LIPITOR [Concomitant]
  4. BUPROPION [Concomitant]
  5. CYTOMEL [Concomitant]
  6. LEVODOPA [Concomitant]
  7. CINNAMON [Concomitant]
  8. MELOXICAM [Concomitant]
  9. FISH OIL [Concomitant]
  10. PAXIL CR [Concomitant]
  11. METFORMIN [Concomitant]
  12. PREVACID [Concomitant]
  13. BIOTIN [Concomitant]
  14. ASPIRIN [Concomitant]
  15. COSAMIN [Concomitant]
  16. VITAMIN D [Concomitant]
  17. BONIVA [Concomitant]
  18. CLARITIN [Concomitant]
  19. OCEAN SALINE NASAL SPRAY [Concomitant]

REACTIONS (11)
  - Dry throat [Unknown]
  - Dysphonia [Unknown]
  - Rotator cuff syndrome [Unknown]
  - Fall [Unknown]
  - Face injury [Unknown]
  - Sinusitis [Recovered/Resolved]
  - Fall [Unknown]
  - Toe amputation [Unknown]
  - Staphylococcal infection [Unknown]
  - Joint dislocation [Unknown]
  - Shock [Unknown]
